FAERS Safety Report 5560715-9 (Version None)
Quarter: 2007Q4

REPORT INFORMATION
  Report Type: 
  Country: None (occurrence: None)
  Receive Date: 20071215
  Receipt Date: 20071119
  Transmission Date: 20080405
  Serious: No
  Sender: FDA-Public Use
  Company Number: US-ABBOTT-07P-163-0426021-00

PATIENT
  Sex: Female
  Weight: 61.29 kg

DRUGS (8)
  1. HUMIRA [Suspect]
     Indication: RHEUMATOID ARTHRITIS
     Route: 058
     Dates: start: 20070927
  2. METHOTREXATE [Concomitant]
     Indication: ARTHRITIS
     Route: 048
  3. SULFASALAZINE [Concomitant]
     Indication: ARTHRITIS
     Route: 048
  4. HYDROXYCHLOROQUINE PHOSPHATE [Concomitant]
     Indication: ARTHRITIS
     Route: 048
  5. FOLIC ACID [Concomitant]
     Indication: ARTHRITIS
     Route: 048
  6. LEVOTHYROXINE SODIUM [Concomitant]
     Indication: BLOOD THYROID STIMULATING HORMONE DECREASED
     Route: 048
  7. METOPROLOL SUCCINATE [Concomitant]
     Indication: HEART RATE INCREASED
     Route: 048
  8. ESTROGENS CONJUGATED [Concomitant]
     Indication: HYSTERECTOMY
     Route: 048

REACTIONS (2)
  - INITIAL INSOMNIA [None]
  - MIDDLE INSOMNIA [None]
